FAERS Safety Report 4659134-9 (Version None)
Quarter: 2005Q2

REPORT INFORMATION
  Report Type: 
  Country: None (occurrence: None)
  Receive Date: 20050502
  Receipt Date: 20050106
  Transmission Date: 20051028
  Serious: No
  Sender: FDA-Public Use
  Company Number: 200419569US

PATIENT
  Age: 63 Year
  Sex: Female

DRUGS (5)
  1. KETEK [Suspect]
     Indication: SINUSITIS
     Dosage: QD PO
     Route: 048
     Dates: start: 20041210, end: 20041213
  2. NIFEDIPINE (PROCARDIA) [Concomitant]
  3. HYDROCHLOROTHIAZIDE, LISINOPRIL (ZESTORETIC) [Concomitant]
  4. ALLEGRA [Concomitant]
  5. GUAIFENESIN [Concomitant]

REACTIONS (2)
  - HEADACHE [None]
  - OCULAR HYPERAEMIA [None]
